FAERS Safety Report 18518110 (Version 1)
Quarter: 2020Q4

REPORT INFORMATION
  Report Type: Report from Study
  Country: US (occurrence: US)
  Receive Date: 20201118
  Receipt Date: 20201118
  Transmission Date: 20210114
  Serious: No
  Sender: FDA-Public Use
  Company Number: US-IPSEN BIOPHARMACEUTICALS, INC.-2019-01036

PATIENT
  Age: 7 Year
  Sex: Male
  Weight: 17 kg

DRUGS (11)
  1. BACITRACIN. [Concomitant]
     Active Substance: BACITRACIN
     Indication: INFECTION
     Dosage: 50000 (UNITS: NOT REPORTED)
     Route: 042
     Dates: start: 20180706, end: 20180706
  2. CEFAZOLIN SODIUM. [Concomitant]
     Active Substance: CEFAZOLIN SODIUM
     Indication: PROPHYLAXIS
     Route: 042
     Dates: start: 20180706, end: 20180706
  3. LACTATED RINGERS SOLUTION [Concomitant]
     Active Substance: CALCIUM CHLORIDE\POTASSIUM CHLORIDE\SODIUM CHLORIDE\SODIUM LACTATE
     Indication: PROPHYLAXIS AGAINST DEHYDRATION
     Route: 042
     Dates: start: 20180706, end: 20180706
  4. FENTANYL CITRATE. [Concomitant]
     Active Substance: FENTANYL CITRATE
     Indication: PROPHYLAXIS
     Dosage: 100 (UNITS: NOT REPORTED)
     Route: 042
     Dates: start: 20180706, end: 20180706
  5. DEXAMETHASONE SODIUM PHOSPHATE. [Concomitant]
     Active Substance: DEXAMETHASONE SODIUM PHOSPHATE
     Indication: PROPHYLAXIS
     Route: 042
     Dates: start: 20180706, end: 20180706
  6. ACETAMINOPHEN. [Concomitant]
     Active Substance: ACETAMINOPHEN
     Indication: PAIN
     Dates: start: 20180706, end: 20180706
  7. ONDANSETRON HCL [Concomitant]
     Active Substance: ONDANSETRON HYDROCHLORIDE
     Indication: NAUSEA
     Route: 042
     Dates: start: 20180706, end: 20180706
  8. DYSPORT [Suspect]
     Active Substance: ABOBOTULINUMTOXINA
     Indication: MUSCLE SPASTICITY
     Dosage: 490 UNITS X1
     Route: 030
     Dates: start: 20180508, end: 20180508
  9. MORPHINE SULFATE. [Concomitant]
     Active Substance: MORPHINE SULFATE
     Indication: PAIN
     Route: 042
     Dates: start: 20180706, end: 20180706
  10. PROPOFOL. [Concomitant]
     Active Substance: PROPOFOL
     Indication: GENERAL ANAESTHESIA
     Route: 042
     Dates: start: 20180706, end: 20180706
  11. BUPIVACAINE HCL [Concomitant]
     Active Substance: BUPIVACAINE HYDROCHLORIDE
     Indication: LOCAL ANAESTHESIA
     Route: 042
     Dates: start: 20180706, end: 20180706

REACTIONS (1)
  - Arthralgia [Recovered/Resolved]

NARRATIVE: CASE EVENT DATE: 20181115
